FAERS Safety Report 21861794 (Version 1)
Quarter: 2023Q1

REPORT INFORMATION
  Report Type: Spontaneous
  Country: GB (occurrence: GB)
  Receive Date: 20230113
  Receipt Date: 20230113
  Transmission Date: 20230417
  Serious: Yes (Other)
  Sender: FDA-Public Use
  Company Number: None

PATIENT
  Age: 81 Year
  Sex: Male
  Weight: 68 kg

DRUGS (13)
  1. SPIRONOLACTONE [Suspect]
     Active Substance: SPIRONOLACTONE
     Dosage: 12.5 MG, 1X/DAY
     Dates: start: 20230104
  2. AMIODARONE [Concomitant]
     Active Substance: AMIODARONE
     Dates: start: 20220706
  3. ATORVASTATIN [Concomitant]
     Active Substance: ATORVASTATIN
     Indication: Cardiac disorder
     Dates: start: 20220517
  4. BISOPROLOL [Concomitant]
     Active Substance: BISOPROLOL
     Dates: start: 20221103
  5. CINNARIZINE [Concomitant]
     Active Substance: CINNARIZINE
     Indication: Vertigo
     Dosage: 1-2
     Dates: start: 20221230, end: 20230106
  6. DAPAGLIFLOZIN [Concomitant]
     Active Substance: DAPAGLIFLOZIN
     Dates: start: 20220706
  7. FENOFIBRATE [Concomitant]
     Active Substance: FENOFIBRATE
     Dosage: TO BE TAKEN AT NIGHT
     Dates: start: 20220706
  8. FINASTERIDE [Concomitant]
     Active Substance: FINASTERIDE
     Dates: start: 20220517
  9. NITROGLYCERIN [Concomitant]
     Active Substance: NITROGLYCERIN
     Dosage: SPRAY ONE OR TWO DOSES UNDER TONGUE AND THEN CL...
     Dates: start: 20220517
  10. ACETAMINOPHEN [Concomitant]
     Active Substance: ACETAMINOPHEN
     Dosage: ONE OR TWO TO BE TAKEN UPTO FOUR TIMES DAILY FO...
     Dates: start: 20220706
  11. SACUBITRIL [Concomitant]
     Active Substance: SACUBITRIL
     Dosage: IN THE EVENING
     Dates: start: 20220706
  12. CINNARIZINE [Concomitant]
     Active Substance: CINNARIZINE
     Indication: Vertigo
     Dates: start: 20230104
  13. WARFARIN SODIUM [Concomitant]
     Active Substance: WARFARIN SODIUM
     Dosage: TO BE TAKEN AS DIRECTED BY ANTICOAGULATION CLIN...
     Dates: start: 20220706

REACTIONS (2)
  - Dizziness postural [Unknown]
  - Hypotension [Unknown]
